FAERS Safety Report 12074364 (Version 1)
Quarter: 2016Q1

REPORT INFORMATION
  Report Type: Spontaneous
  Country: US (occurrence: US)
  Receive Date: 20160212
  Receipt Date: 20160212
  Transmission Date: 20160526
  Serious: Yes (Death)
  Sender: FDA-Public Use
  Company Number: US-PERRIGO-16US001359

PATIENT
  Age: 15 Year
  Sex: Female

DRUGS (5)
  1. ACETAMINOPHEN W/HYDROCODONE [Suspect]
     Active Substance: ACETAMINOPHEN\HYDROCODONE
     Indication: COMPLETED SUICIDE
     Dosage: UNK
     Route: 048
  2. CITALOPRAM [Suspect]
     Active Substance: CITALOPRAM HYDROBROMIDE
     Indication: COMPLETED SUICIDE
     Dosage: UNK
     Route: 048
  3. TEMAZEPAM. [Suspect]
     Active Substance: TEMAZEPAM
     Indication: COMPLETED SUICIDE
     Dosage: UNK
     Route: 048
  4. MORPHINE SULFATE 20 MG/ML 0L8 [Suspect]
     Active Substance: MORPHINE SULFATE
     Indication: COMPLETED SUICIDE
     Dosage: UNK
     Route: 048
  5. OXYCODONE [Suspect]
     Active Substance: OXYCODONE
     Indication: COMPLETED SUICIDE
     Dosage: UNK
     Route: 048

REACTIONS (1)
  - Death [Fatal]
